FAERS Safety Report 8884846 (Version 4)
Quarter: 2012Q4

REPORT INFORMATION
  Report Type: Report from Study
  Country: FR (occurrence: FR)
  Receive Date: 20121102
  Receipt Date: 20121109
  Transmission Date: 20130627
  Serious: Yes (Death, Life-Threatening)
  Sender: FDA-Public Use
  Company Number: FR-TEVA-367800USA

PATIENT
  Age: 64 Year
  Sex: Male
  Weight: 74 kg

DRUGS (3)
  1. TREANDA [Suspect]
     Indication: B-CELL LYMPHOMA
     Dosage: Unknown/D
     Route: 042
     Dates: start: 20120611, end: 20120719
  2. RITUXIMAB [Suspect]
     Indication: B-CELL LYMPHOMA
     Dosage: Unknown/D
     Dates: start: 20120611, end: 20120919
  3. AUGMENTIN [Concomitant]
     Indication: INFECTION
     Dates: start: 20121010, end: 20121017

REACTIONS (2)
  - Streptococcal infection [Fatal]
  - Cardiac arrest [Recovered/Resolved]
